FAERS Safety Report 11481139 (Version 2)
Quarter: 2015Q4

REPORT INFORMATION
  Report Type: Spontaneous
  Country: US (occurrence: US)
  Receive Date: 20150909
  Receipt Date: 20151002
  Transmission Date: 20160304
  Serious: Yes (Life-Threatening, Hospitalization, Disabling, Other)
  Sender: FDA-Public Use
  Company Number: US-GLAXOSMITHKLINE-US2015128891

PATIENT
  Sex: Female
  Weight: 77.98 kg

DRUGS (2)
  1. ACYCLOVIR. [Suspect]
     Active Substance: ACYCLOVIR
     Indication: GENITAL HERPES
     Dosage: UNK
  2. VALTREX [Suspect]
     Active Substance: VALACYCLOVIR HYDROCHLORIDE
     Indication: GENITAL HERPES
     Dosage: 500 MG, BID
     Route: 048
     Dates: start: 20150901, end: 20150905

REACTIONS (2)
  - Suicidal ideation [Not Recovered/Not Resolved]
  - Psychotic disorder [Not Recovered/Not Resolved]
